FAERS Safety Report 5485078-9 (Version None)
Quarter: 2007Q4

REPORT INFORMATION
  Report Type: 
  Country: None (occurrence: None)
  Receive Date: 20071015
  Receipt Date: 20071008
  Transmission Date: 20080405
  Serious: Yes (Other)
  Sender: FDA-Public Use
  Company Number: PHRM2007FR02268

PATIENT
  Age: 59 Year
  Sex: Female
  Weight: 82 kg

DRUGS (3)
  1. FEMARA [Concomitant]
     Indication: BREAST CANCER METASTATIC
     Route: 048
  2. ZOMETA [Suspect]
     Indication: METASTASES TO BONE
     Dosage: 4 MG, QMO
     Route: 042
     Dates: start: 20070501, end: 20070825
  3. XELODA [Concomitant]
     Dosage: 3200 MG
     Dates: start: 20070701, end: 20070901

REACTIONS (6)
  - CHILLS [None]
  - PAIN [None]
  - PRURITUS [None]
  - PURPURA [None]
  - RASH ERYTHEMATOUS [None]
  - RASH MACULAR [None]
